FAERS Safety Report 21312210 (Version 1)
Quarter: 2022Q3

REPORT INFORMATION
  Report Type: Spontaneous
  Country: US (occurrence: None)
  Receive Date: 20220909
  Receipt Date: 20220909
  Transmission Date: 20221027
  Serious: No
  Sender: FDA-Public Use
  Company Number: US-ARIS GLOBAL-202204-0764

PATIENT
  Age: 77 Year
  Sex: Male

DRUGS (18)
  1. OXERVATE [Suspect]
     Active Substance: CENEGERMIN-BKBJ
     Indication: Keratitis
     Route: 047
     Dates: start: 20220322
  2. BETA GLUCAN [Concomitant]
     Active Substance: BETA GLUCAN
  3. COLACE [Concomitant]
     Active Substance: DOCUSATE SODIUM
  4. SODIUM CHLORIDE [Concomitant]
     Active Substance: SODIUM CHLORIDE
  5. BLUEBERRY FLAVOR LIQUID [Concomitant]
  6. B-6 [Concomitant]
  7. B-1 [Concomitant]
  8. VITAMIN B12 [Concomitant]
     Active Substance: CYANOCOBALAMIN
  9. JARDIANCE [Concomitant]
     Active Substance: EMPAGLIFLOZIN
  10. GLIPIZIDE [Concomitant]
     Active Substance: GLIPIZIDE
  11. ROSUVASTATIN CALCIUM [Concomitant]
     Active Substance: ROSUVASTATIN CALCIUM
  12. CARVEDILOL [Concomitant]
     Active Substance: CARVEDILOL
  13. ENTRESTO [Concomitant]
     Active Substance: SACUBITRIL\VALSARTAN
     Dosage: 49 MG-51 MG
  14. FUROSEMIDE [Concomitant]
     Active Substance: FUROSEMIDE
  15. GABAPENTIN [Concomitant]
     Active Substance: GABAPENTIN
  16. TAMSULOSIN HYDROCHLORIDE [Concomitant]
     Active Substance: TAMSULOSIN HYDROCHLORIDE
  17. LEVEMIR [Concomitant]
     Active Substance: INSULIN DETEMIR
  18. HUMALOG [Concomitant]
     Active Substance: INSULIN LISPRO
     Dosage: 100/ML CARTRIDGE

REACTIONS (2)
  - Product storage error [Unknown]
  - Wrong technique in product usage process [Unknown]

NARRATIVE: CASE EVENT DATE: 20220419
